FAERS Safety Report 6435426-8 (Version None)
Quarter: 2009Q4

REPORT INFORMATION
  Report Type: 
  Country: None (occurrence: None)
  Receive Date: 20091106
  Receipt Date: 20091027
  Transmission Date: 20100525
  Serious: Yes (Hospitalization, Disabling)
  Sender: FDA-Public Use
  Company Number: 232062J09USA

PATIENT
  Age: 42 Year
  Sex: Female
  Weight: 94 kg

DRUGS (4)
  1. REBIF [Suspect]
     Indication: MULTIPLE SCLEROSIS
     Dosage: 44 MCG, 3 IN 1 WEEKS, SUBCUTANEOUS
     Route: 058
     Dates: start: 20081111
  2. FLEXERIL [Concomitant]
  3. SAVELLA (MILNACIPRAN) [Concomitant]
  4. PERCOCET [Concomitant]

REACTIONS (16)
  - ABASIA [None]
  - CONDITION AGGRAVATED [None]
  - CONSTIPATION [None]
  - CYSTITIS [None]
  - DYSURIA [None]
  - FALL [None]
  - FATIGUE [None]
  - HYPOAESTHESIA [None]
  - INJECTION SITE ERYTHEMA [None]
  - INJECTION SITE PAIN [None]
  - INJECTION SITE PRURITUS [None]
  - INTERVERTEBRAL DISC PROTRUSION [None]
  - MULTIPLE SCLEROSIS [None]
  - MUSCULOSKELETAL PAIN [None]
  - PAIN [None]
  - PARAESTHESIA [None]
